FAERS Safety Report 22277654 (Version 1)
Quarter: 2023Q2

REPORT INFORMATION
  Report Type: Spontaneous
  Country: NL (occurrence: NL)
  Receive Date: 20230503
  Receipt Date: 20230503
  Transmission Date: 20230722
  Serious: Yes (Life-Threatening, Hospitalization, Other)
  Sender: FDA-Public Use
  Company Number: None

PATIENT
  Age: 24 Day
  Sex: Male
  Weight: 3 kg

DRUGS (2)
  1. SODIUM CHLORIDE [Suspect]
     Active Substance: SODIUM CHLORIDE
     Indication: Prophylaxis
     Dosage: 90 ML, 2 TIMES PER DAY (RANGING BETWEEN 90 AND 280 ML)
     Route: 054
  2. SODIUM CHLORIDE [Suspect]
     Active Substance: SODIUM CHLORIDE
     Dosage: 280 ML (RANGING BETWEEN 90 AND 280 ML)
     Route: 054

REACTIONS (4)
  - Weight decrease neonatal [Unknown]
  - Acidosis hyperchloraemic [Recovered/Resolved]
  - Cardiovascular insufficiency [Recovered/Resolved]
  - Neonatal respiratory failure [Recovered/Resolved]
